FAERS Safety Report 8694213 (Version 1)
Quarter: 2012Q4

REPORT INFORMATION
  Report Type: 
  Country: US (occurrence: US)
  Receive Date: 20120911
  Receipt Date: 20120911
  Transmission Date: 20130627
  Serious: Yes (Other)
  Sender: FDA-Public Use
  Company Number: US-NOVOPROD-356617

PATIENT
  Age: 66 Year
  Sex: Female
  Weight: 81.63 kg

DRUGS (8)
  1. VAGIFEM [Suspect]
     Indication: VULVOVAGINAL DRYNESS
     Dosage: 10 ?g, qd
     Route: 067
     Dates: start: 2010
  2. VAGIFEM [Suspect]
     Indication: VULVOVAGINAL PAIN
     Dosage: 10 ?g, tid
     Route: 067
  3. VAGIFEM [Suspect]
     Dosage: 10 ?g, bid
     Route: 067
  4. VAGIFEM [Suspect]
     Dosage: 10 ?g, prn
     Route: 067
     Dates: end: 20120625
  5. HUMULIN [Concomitant]
     Indication: DIABETES MELLITUS
     Route: 058
  6. INSULIN ISOPHANE [Concomitant]
     Indication: DIABETES MELLITUS
     Route: 058
  7. LIPITOR [Concomitant]
     Indication: BLOOD CHOLESTEROL ABNORMAL
     Dosage: 20 mg, qd
     Route: 048
  8. LIPITOR [Concomitant]
     Dosage: 20 mg, qod
     Route: 048

REACTIONS (3)
  - Road traffic accident [Unknown]
  - Femur fracture [Unknown]
  - Drug ineffective [Unknown]
